FAERS Safety Report 9820710 (Version 1)
Quarter: 2013Q4

REPORT INFORMATION
  Report Type: Spontaneous
  Country: US (occurrence: None)
  Receive Date: 20131028
  Receipt Date: 20131028
  Transmission Date: 20140711
  Serious: Yes (Other)
  Sender: FDA-Public Use
  Company Number: 2013US001069

PATIENT
  Age: 53 Year
  Sex: Female

DRUGS (4)
  1. ICLUSIG [Suspect]
     Indication: CHRONIC MYELOID LEUKAEMIA
     Dosage: 45 MG, QD, ORAL
     Route: 048
     Dates: start: 20130116, end: 20130120
  2. SYNTHROID (LEVOTHYROXINE SODIUM) [Concomitant]
  3. IBUPROFEN (IBUPROFEN SODIUM) [Concomitant]
  4. VITAMINS [Concomitant]

REACTIONS (5)
  - Pain in extremity [None]
  - Muscle spasms [None]
  - Musculoskeletal stiffness [None]
  - Oedema peripheral [None]
  - Malaise [None]
